FAERS Safety Report 7085676-5 (Version None)
Quarter: 2010Q4

REPORT INFORMATION
  Report Type: 
  Country: None (occurrence: None)
  Receive Date: 20101105
  Receipt Date: 20101028
  Transmission Date: 20110411
  Serious: Yes (Other)
  Sender: FDA-Public Use
  Company Number: US-PFIZER INC-2010137667

PATIENT
  Sex: Male
  Weight: 80.726 kg

DRUGS (5)
  1. CARDURA [Suspect]
     Indication: HYPERTENSION
     Dosage: 4 MG, 2X/DAY
     Route: 048
  2. CARDURA [Suspect]
     Indication: PROSTATIC DISORDER
  3. XANAX [Concomitant]
     Dosage: UNK
  4. RESTORIL [Concomitant]
     Indication: SLEEP DISORDER
     Dosage: UNK
  5. POTASSIUM [Concomitant]
     Dosage: UNK

REACTIONS (3)
  - BLOOD CHOLESTEROL INCREASED [None]
  - BLOOD PRESSURE INCREASED [None]
  - DRUG INEFFECTIVE [None]
